FAERS Safety Report 8819846 (Version 2)
Quarter: 2013Q1

REPORT INFORMATION
  Report Type: Spontaneous
  Country: US (occurrence: US)
  Receive Date: 20121002
  Receipt Date: 20130220
  Transmission Date: 20140127
  Serious: Yes (Hospitalization)
  Sender: FDA-Public Use
  Company Number: US-BAYER-2012-101380

PATIENT
  Age: 22 Year
  Sex: Female
  Weight: 62.13 kg

DRUGS (2)
  1. YAZ [Suspect]
     Indication: CONTRACEPTION
     Dosage: UNK
     Dates: start: 200707, end: 200807
  2. YAZ [Suspect]
     Indication: MENSTRUATION IRREGULAR

REACTIONS (4)
  - Gallbladder injury [None]
  - Injury [None]
  - Pain [None]
  - Biliary dyskinesia [None]
